FAERS Safety Report 14518076 (Version 2)
Quarter: 2018Q1

REPORT INFORMATION
  Report Type: Spontaneous
  Country: US (occurrence: US)
  Receive Date: 20180212
  Receipt Date: 20180215
  Transmission Date: 20180509
  Serious: Yes (Death, Hospitalization, Other)
  Sender: FDA-Public Use
  Company Number: US-009507513-1802USA002568

PATIENT
  Age: 60 Year
  Sex: Female

DRUGS (1)
  1. ASMANEX [Suspect]
     Active Substance: MOMETASONE FUROATE
     Indication: ASTHMA
     Dosage: UNK, 60 DOSES INHALER
     Route: 055
     Dates: start: 201712, end: 201712

REACTIONS (4)
  - Brain death [Unknown]
  - Oxygen therapy [Unknown]
  - Death [Fatal]
  - Resuscitation [Unknown]

NARRATIVE: CASE EVENT DATE: 201712
